FAERS Safety Report 7632746-6 (Version None)
Quarter: 2011Q3

REPORT INFORMATION
  Report Type: 
  Country: None (occurrence: None)
  Receive Date: 20110725
  Receipt Date: 20101221
  Transmission Date: 20111222
  Serious: Yes (Other)
  Sender: FDA-Public Use
  Company Number: US-BRISTOL-MYERS SQUIBB COMPANY-15454713

PATIENT
  Age: 79 Year
  Sex: Male

DRUGS (4)
  1. POTASSIUM [Concomitant]
  2. FLAGYL [Concomitant]
  3. MAGNESIUM [Concomitant]
  4. COUMADIN [Suspect]
     Dosage: TAKEN 2 MONTHS AGO  1 DF:1-2MG

REACTIONS (2)
  - INTERNATIONAL NORMALISED RATIO INCREASED [None]
  - DEHYDRATION [None]
